FAERS Safety Report 14781545 (Version 1)
Quarter: 2018Q2

REPORT INFORMATION
  Report Type: Spontaneous
  Country: CA (occurrence: CA)
  Receive Date: 20180420
  Receipt Date: 20180420
  Transmission Date: 20180711
  Serious: Yes (Disabling, Other)
  Sender: FDA-Public Use
  Company Number: CA-TEVA-2018-CA-882734

PATIENT
  Age: 4 Year
  Sex: Female
  Weight: 20 kg

DRUGS (11)
  1. MERCAPTOPURINE. [Concomitant]
     Active Substance: MERCAPTOPURINE
  2. METHYLPREDNISOLONE. [Suspect]
     Active Substance: METHYLPREDNISOLONE
     Indication: LEUKAEMIA
     Route: 042
  3. PREDNISONE. [Suspect]
     Active Substance: PREDNISONE
     Indication: LEUKAEMIA
     Route: 042
  4. METHOTREXATE. [Concomitant]
     Active Substance: METHOTREXATE
  5. L-ASPARAGINASE [Concomitant]
     Active Substance: ASPARAGINASE
     Route: 030
  6. CYTARABINE. [Concomitant]
     Active Substance: CYTARABINE
     Route: 065
  7. DOXORUBICIN LIPOSOMAL [Concomitant]
     Active Substance: DOXORUBICIN
     Route: 065
  8. HYDROCORTISONE (NGX) [Concomitant]
     Active Substance: HYDROCORTISONE
  9. HYDROCORTISONE. [Suspect]
     Active Substance: HYDROCORTISONE
     Indication: LEUKAEMIA
     Route: 042
  10. DEXAMETHASONE. [Concomitant]
     Active Substance: DEXAMETHASONE
  11. VINCRISTINE SULFATE. [Suspect]
     Active Substance: VINCRISTINE SULFATE
     Indication: LEUKAEMIA
     Route: 042

REACTIONS (7)
  - Myopathy [Unknown]
  - Asthenia [Unknown]
  - Constipation [Unknown]
  - Gait disturbance [Unknown]
  - Hypotonia [Unknown]
  - Neuropathy peripheral [Unknown]
  - Pain in extremity [Unknown]
